FAERS Safety Report 4869802-1 (Version None)
Quarter: 2005Q4

REPORT INFORMATION
  Report Type: 
  Country: None (occurrence: None)
  Receive Date: 20051223
  Receipt Date: 20051213
  Transmission Date: 20060501
  Serious: Yes (Hospitalization, Other)
  Sender: FDA-Public Use
  Company Number: PHEH2005US08090

PATIENT
  Age: 80 Year
  Sex: Male
  Weight: 75.2971 kg

DRUGS (15)
  1. VISUDYNE [Suspect]
     Indication: MACULAR DEGENERATION
     Dosage: 11.4 MG DAILY IV
     Route: 042
     Dates: start: 20050712, end: 20050712
  2. THEOPHYLLINE [Concomitant]
  3. VERAPAMIL [Concomitant]
  4. MYCARDIS [Concomitant]
  5. OMEPRAZOLE [Concomitant]
  6. GUAIFENESIN [Concomitant]
  7. ZOCOR [Concomitant]
  8. FLOVENT [Concomitant]
  9. FORADIL [Concomitant]
  10. ALBUTEROL [Concomitant]
  11. DUONEB [Concomitant]
  12. SALSALATE [Concomitant]
  13. FLONASE [Concomitant]
  14. FLOVENT [Concomitant]
  15. FLUNISOLIDE [Concomitant]

REACTIONS (9)
  - BACK PAIN [None]
  - BLOOD PRESSURE FLUCTUATION [None]
  - BLOOD PRESSURE INCREASED [None]
  - CORONARY ARTERY DISEASE [None]
  - CORONARY ARTERY OCCLUSION [None]
  - GYNAECOMASTIA [None]
  - MITRAL VALVE DISEASE [None]
  - MYOCARDIAL INFARCTION [None]
  - MYOCARDIAL ISCHAEMIA [None]
